FAERS Safety Report 11268098 (Version 3)
Quarter: 2015Q3

REPORT INFORMATION
  Report Type: Report from Study
  Country: US (occurrence: US)
  Receive Date: 20150714
  Receipt Date: 20150821
  Transmission Date: 20151125
  Serious: No
  Sender: FDA-Public Use
  Company Number: US-AMGEN-USASL2015068811

PATIENT
  Age: 59 Year
  Sex: Female

DRUGS (1)
  1. ENBREL [Suspect]
     Active Substance: ETANERCEPT
     Indication: RHEUMATOID ARTHRITIS
     Dosage: 50 MG, QWK
     Route: 065
     Dates: start: 20150702

REACTIONS (13)
  - Oropharyngeal pain [Not Recovered/Not Resolved]
  - Injection site pruritus [Unknown]
  - Headache [Unknown]
  - Drug dose omission [Recovered/Resolved]
  - Injection site induration [Unknown]
  - Diarrhoea [Recovered/Resolved]
  - Eye pain [Not Recovered/Not Resolved]
  - Injection site discolouration [Unknown]
  - Cough [Unknown]
  - Nasopharyngitis [Not Recovered/Not Resolved]
  - Abdominal discomfort [Recovered/Resolved]
  - Injection site reaction [Unknown]
  - Injection site rash [Unknown]

NARRATIVE: CASE EVENT DATE: 2015
